FAERS Safety Report 8284579-8 (Version None)
Quarter: 2012Q2

REPORT INFORMATION
  Report Type: 
  Country: None (occurrence: None)
  Receive Date: 20120413
  Receipt Date: 20110803
  Transmission Date: 20120825
  Serious: No
  Sender: FDA-Public Use
  Company Number: US-ASTRAZENECA-2011SE46664

PATIENT
  Sex: Male

DRUGS (2)
  1. AUGMENTIN '125' [Concomitant]
  2. NEXIUM [Suspect]
     Indication: GASTROOESOPHAGEAL REFLUX DISEASE
     Dosage: AS REQUIRED
     Route: 048

REACTIONS (3)
  - CLOSTRIDIAL INFECTION [None]
  - INFECTION [None]
  - HEADACHE [None]
